FAERS Safety Report 5948306-9 (Version None)
Quarter: 2008Q4

REPORT INFORMATION
  Report Type: 
  Country: None (occurrence: None)
  Receive Date: 20081110
  Receipt Date: 20081110
  Transmission Date: 20090506
  Serious: Yes (Hospitalization)
  Sender: FDA-Public Use
  Company Number: None

PATIENT
  Age: 60 Year
  Sex: Female
  Weight: 49.8957 kg

DRUGS (1)
  1. CELEBREX [Suspect]
     Indication: MENISCUS LESION
     Dosage: 200 MG MORNING + EVENING PO
     Route: 048
     Dates: start: 20080912, end: 20081015

REACTIONS (6)
  - ARTHRALGIA [None]
  - IMMOBILE [None]
  - INFLAMMATION [None]
  - PAIN [None]
  - WALKING AID USER [None]
  - WHEELCHAIR USER [None]
